FAERS Safety Report 18556254 (Version 1)
Quarter: 2020Q4

REPORT INFORMATION
  Report Type: Spontaneous
  Country: US (occurrence: US)
  Receive Date: 20201128
  Receipt Date: 20201128
  Transmission Date: 20210114
  Serious: No
  Sender: FDA-Public Use
  Company Number: US-009507513-2011USA009435

PATIENT
  Age: 26 Year
  Sex: Female

DRUGS (11)
  1. ALBUTEROL SULFATE. [Suspect]
     Active Substance: ALBUTEROL SULFATE
     Indication: ASTHMA
     Dosage: 1 PUFF EVERY 6 HOURS AS NEEDED
     Dates: start: 201911, end: 20201023
  2. FAMOTIDINE. [Concomitant]
     Active Substance: FAMOTIDINE
     Dosage: UNK
  3. CLONIDINE. [Concomitant]
     Active Substance: CLONIDINE
     Dosage: UNK
  4. PROVENTIL [Suspect]
     Active Substance: ALBUTEROL
     Indication: ASTHMA
     Dosage: 1 PUFF EVERY 6 HOURS AS NEEDED
     Dates: start: 201911, end: 20201023
  5. BUDESONIDE. [Concomitant]
     Active Substance: BUDESONIDE
     Dosage: UNK
  6. VITAMIN D (UNSPECIFIED) [Concomitant]
     Active Substance: VITAMIN D NOS
     Dosage: UNK
  7. REXULTI [Concomitant]
     Active Substance: BREXPIPRAZOLE
     Dosage: UNK
  8. LEVOCETIRIZINE [Concomitant]
     Active Substance: LEVOCETIRIZINE
     Dosage: UNK
  9. CRYSELLE [Concomitant]
     Active Substance: ETHINYL ESTRADIOL\NORGESTREL
     Dosage: 0.3MG/0/03MG
  10. SINGULAIR [Concomitant]
     Active Substance: MONTELUKAST SODIUM
     Dosage: UNK
  11. CITALOPRAM [Concomitant]
     Active Substance: CITALOPRAM HYDROBROMIDE
     Dosage: UNK

REACTIONS (4)
  - Device malfunction [Unknown]
  - Poor quality device used [Unknown]
  - Product dose omission issue [Unknown]
  - Dyspnoea [Unknown]

NARRATIVE: CASE EVENT DATE: 2020
